FAERS Safety Report 5178860-9 (Version None)
Quarter: 2006Q4

REPORT INFORMATION
  Report Type: 
  Country: None (occurrence: None)
  Receive Date: 20061208
  Receipt Date: 20061129
  Transmission Date: 20070319
  Serious: Yes (Other)
  Sender: FDA-Public Use
  Company Number: 233333

PATIENT

DRUGS (2)
  1. AVASTIN [Suspect]
     Indication: BREAST CANCER METASTATIC
  2. TAXOL [Concomitant]

REACTIONS (1)
  - PNEUMOTHORAX [None]
